FAERS Safety Report 7527822-2 (Version None)
Quarter: 2011Q2

REPORT INFORMATION
  Report Type: 
  Country: None (occurrence: None)
  Receive Date: 20110512
  Receipt Date: 20110203
  Transmission Date: 20111010
  Serious: No
  Sender: FDA-Public Use
  Company Number: 1000018656

PATIENT
  Age: 53 Year
  Sex: Female

DRUGS (12)
  1. SAVELLA [Suspect]
     Indication: FIBROMYALGIA
     Dosage: 200 MG (100 MG,2 IN 1 D),ORAL ; ORAL
     Route: 048
     Dates: start: 20101201, end: 20101201
  2. SAVELLA [Suspect]
     Indication: FIBROMYALGIA
     Dosage: 200 MG (100 MG,2 IN 1 D),ORAL ; ORAL
     Route: 048
     Dates: start: 20110127
  3. ESTRACE (ESTRADIOL) (ESTRADIOL) [Concomitant]
  4. SAVELLA [Suspect]
     Indication: FIBROMYALGIA
     Dosage: 150 MG (75 MG,2 IN 1 D),ORAL
     Route: 048
     Dates: start: 20101201, end: 20110126
  5. SAVELLA [Suspect]
     Indication: FIBROMYALGIA
     Dosage: SEE IMAGE
     Route: 048
     Dates: start: 20101126, end: 20101126
  6. SAVELLA [Suspect]
     Indication: FIBROMYALGIA
     Dosage: SEE IMAGE
     Route: 048
     Dates: start: 20101127, end: 20101128
  7. SAVELLA [Suspect]
     Indication: FIBROMYALGIA
     Dosage: SEE IMAGE
     Route: 048
     Dates: start: 20101129, end: 20101202
  8. SAVELLA [Suspect]
     Indication: FIBROMYALGIA
     Dosage: SEE IMAGE
     Route: 048
     Dates: start: 20101203, end: 20101201
  9. CLONAZEPAM [Concomitant]
  10. ASPIRIN [Concomitant]
  11. MOTRIN [Concomitant]
  12. ZOCOR [Concomitant]

REACTIONS (1)
  - HYPERHIDROSIS [None]
